FAERS Safety Report 18264368 (Version 2)
Quarter: 2020Q3

REPORT INFORMATION
  Report Type: Spontaneous
  Country: JP (occurrence: JP)
  Receive Date: 20200914
  Receipt Date: 20200924
  Transmission Date: 20201103
  Serious: Yes (Death, Other)
  Sender: FDA-Public Use
  Company Number: JP-FERRINGPH-2020FE05982

PATIENT
  Age: 71 Year
  Sex: Male

DRUGS (1)
  1. GONAX [Suspect]
     Active Substance: DEGARELIX
     Indication: PROSTATE CANCER
     Dosage: 80 MG, EVERY 4 WEEKS
     Route: 058
     Dates: end: 20200720

REACTIONS (2)
  - Prostate cancer [Fatal]
  - Cerebral infarction [Unknown]

NARRATIVE: CASE EVENT DATE: 20200815
